FAERS Safety Report 10385341 (Version 1)
Quarter: 2014Q1

REPORT INFORMATION
  Report Type: Spontaneous
  Country: US (occurrence: None)
  Receive Date: 20140306
  Receipt Date: 20140306
  Transmission Date: 20141002
  Serious: Yes (Life-Threatening, Other)
  Sender: FDA-Public Use
  Company Number: 163-21880-13033111

PATIENT
  Age: 73 Year
  Sex: Female

DRUGS (2)
  1. REVLIMID (LENALIDOMIDE) (5 MILLIGRAM, CAPSULES) [Suspect]
     Indication: MYELODYSPLASTIC SYNDROME
     Dosage: 22-FEB-2013 - DISCONTINUED
     Route: 048
     Dates: start: 20130222
  2. EXJADE [Suspect]
     Indication: PRODUCT USED FOR UNKNOWN INDICATION

REACTIONS (3)
  - Drug intolerance [None]
  - Pruritus generalised [None]
  - Vision blurred [None]
